FAERS Safety Report 10156651 (Version 1)
Quarter: 2014Q2

REPORT INFORMATION
  Report Type: Spontaneous
  Country: US (occurrence: None)
  Receive Date: 20140506
  Receipt Date: 20140506
  Transmission Date: 20141212
  Serious: Yes (Hospitalization)
  Sender: FDA-Public Use
  Company Number: None

PATIENT
  Age: 88 Year
  Sex: Female
  Weight: 60 kg

DRUGS (2)
  1. CARBOPLATIN [Suspect]
  2. PACLITAXEL (TAXOL) [Suspect]

REACTIONS (13)
  - Asthenia [None]
  - Atrial fibrillation [None]
  - Productive cough [None]
  - Fatigue [None]
  - Chest pain [None]
  - Dyspnoea [None]
  - Nausea [None]
  - Vomiting [None]
  - Diarrhoea [None]
  - Hypoaesthesia [None]
  - Blood pressure decreased [None]
  - Respiratory rate increased [None]
  - Pneumonia [None]
